FAERS Safety Report 7556374-6 (Version None)
Quarter: 2011Q2

REPORT INFORMATION
  Report Type: 
  Country: None (occurrence: None)
  Receive Date: 20110620
  Receipt Date: 20110608
  Transmission Date: 20111010
  Serious: Yes (Hospitalization, Other)
  Sender: FDA-Public Use
  Company Number: CA-ELI_LILLY_AND_COMPANY-CA201102002070

PATIENT
  Age: 77 Year
  Sex: Male
  Weight: 79.2 kg

DRUGS (10)
  1. FORTEO [Suspect]
     Indication: OSTEOPOROSIS
     Dosage: 20 UG, DAILY (1/D)
     Route: 058
     Dates: start: 20090701
  2. LOPRESSOR [Concomitant]
     Dosage: UNK, UNKNOWN
     Route: 065
  3. CRESTOR [Concomitant]
  4. VITAMIN D [Concomitant]
     Dosage: UNK, UNKNOWN
     Route: 065
  5. RYTHMOL [Concomitant]
  6. COUMADIN [Concomitant]
     Dosage: UNK, UNKNOWN
     Route: 065
  7. FLOMAX [Concomitant]
     Dosage: UNK, UNKNOWN
     Route: 065
  8. ASCORBIC ACID [Concomitant]
     Dosage: UNK, UNKNOWN
     Route: 065
  9. CALCIUM CARBONATE [Concomitant]
     Dosage: UNK, UNKNOWN
     Route: 065
  10. ANDROGEL [Concomitant]

REACTIONS (2)
  - PULMONARY HYPERTENSION [None]
  - NON-SMALL CELL LUNG CANCER [None]
